FAERS Safety Report 11788963 (Version 7)
Quarter: 2016Q3

REPORT INFORMATION
  Report Type: Report from Study
  Country: CA (occurrence: CA)
  Receive Date: 20151201
  Receipt Date: 20160705
  Transmission Date: 20161109
  Serious: Yes (Other)
  Sender: FDA-Public Use
  Company Number: PHHY2015CA151030

PATIENT
  Age: 61 Year
  Sex: Female

DRUGS (2)
  1. SANDOSTATIN [Suspect]
     Active Substance: OCTREOTIDE ACETATE
     Indication: CARCINOID TUMOUR
     Dosage: 50 UG, UNK
     Route: 058
     Dates: start: 20151112, end: 20151112
  2. SANDOSTATIN LAR DEPOT [Suspect]
     Active Substance: OCTREOTIDE ACETATE
     Indication: CARCINOID TUMOUR
     Dosage: 30 MG, QMO (EVERY 4 WEEKS)
     Route: 030
     Dates: start: 20151201

REACTIONS (21)
  - Fall [Unknown]
  - Hair growth abnormal [Unknown]
  - Local swelling [Unknown]
  - Dry eye [Unknown]
  - Diarrhoea [Unknown]
  - Clavicle fracture [Unknown]
  - Arthralgia [Unknown]
  - Eye pain [Unknown]
  - Fatigue [Unknown]
  - Humerus fracture [Recovering/Resolving]
  - Blood pressure systolic increased [Unknown]
  - Nervousness [Unknown]
  - Asthenopia [Unknown]
  - Malaise [Unknown]
  - Musculoskeletal pain [Unknown]
  - Back pain [Unknown]
  - Headache [Unknown]
  - Decreased appetite [Unknown]
  - Abdominal distension [Unknown]
  - Influenza like illness [Unknown]
  - Pain [Unknown]

NARRATIVE: CASE EVENT DATE: 20151112
